FAERS Safety Report 13585694 (Version 2)
Quarter: 2019Q3

REPORT INFORMATION
  Report Type: Spontaneous
  Country: US (occurrence: US)
  Receive Date: 20170526
  Receipt Date: 20190924
  Transmission Date: 20191004
  Serious: No
  Sender: FDA-Public Use
  Company Number: US-INCYTE CORPORATION-2017IN003936

PATIENT

DRUGS (4)
  1. JAKAFI [Suspect]
     Active Substance: RUXOLITINIB
     Indication: MYELODYSPLASTIC SYNDROME
     Dosage: 5 MG, BID
     Route: 048
     Dates: start: 20170510
  2. JAKAFI [Suspect]
     Active Substance: RUXOLITINIB
     Indication: MYELOPROLIFERATIVE NEOPLASM
     Dosage: 10MG, 15MG DAILY
     Route: 048
  3. JAKAFI [Suspect]
     Active Substance: RUXOLITINIB
     Dosage: 10 MG EVERY MORNING, 15 MG EVERY NIGHT BID
     Route: 048
     Dates: start: 201705
  4. JAKAFI [Suspect]
     Active Substance: RUXOLITINIB
     Dosage: 10 MG EVERY MORNING, 15 MG EVERY NIGHT BID
     Route: 048
     Dates: start: 201705

REACTIONS (9)
  - Constipation [Recovering/Resolving]
  - Fatigue [Recovering/Resolving]
  - Neuralgia [Unknown]
  - Off label use [Unknown]
  - Dizziness [Recovered/Resolved]
  - Headache [Recovering/Resolving]
  - Contusion [Recovering/Resolving]
  - Glossitis [Recovering/Resolving]
  - Stomatitis [Recovering/Resolving]

NARRATIVE: CASE EVENT DATE: 201705
